FAERS Safety Report 7020824-4 (Version None)
Quarter: 2010Q3

REPORT INFORMATION
  Report Type: 
  Country: None (occurrence: None)
  Receive Date: 20100929
  Receipt Date: 20100923
  Transmission Date: 20110219
  Serious: Yes (Other)
  Sender: FDA-Public Use
  Company Number: FR-MERCK-1009FRA00088

PATIENT
  Age: 70 Year
  Sex: Female
  Weight: 65 kg

DRUGS (8)
  1. JANUVIA [Suspect]
     Indication: TYPE 2 DIABETES MELLITUS
     Route: 048
     Dates: start: 20100827, end: 20100827
  2. HYDROCHLOROTHIAZIDE [Suspect]
     Indication: NEPHROGENIC DIABETES INSIPIDUS
     Route: 048
     Dates: start: 20100825, end: 20100831
  3. HYDROCHLOROTHIAZIDE [Suspect]
     Route: 048
     Dates: start: 20100831, end: 20100906
  4. AMLODIPINE BESYLATE [Concomitant]
     Route: 065
  5. DIVALPROEX SODIUM [Concomitant]
     Indication: BIPOLAR I DISORDER
     Route: 065
  6. CITALOPRAM HYDROBROMIDE [Concomitant]
     Route: 065
  7. LORAZEPAM [Concomitant]
     Route: 065
  8. REPAGLINIDE [Concomitant]
     Route: 065
     Dates: start: 20100825, end: 20100826

REACTIONS (5)
  - DEMENTIA [None]
  - DRUG ADMINISTRATION ERROR [None]
  - ECHOLALIA [None]
  - HYPOKALAEMIA [None]
  - TREMOR [None]
